FAERS Safety Report 6163727-X (Version None)
Quarter: 2009Q2

REPORT INFORMATION
  Report Type: 
  Country: None (occurrence: None)
  Receive Date: 20090420
  Receipt Date: 20090408
  Transmission Date: 20091009
  Serious: Yes (Other)
  Sender: FDA-Public Use
  Company Number: 2009US000829

PATIENT
  Age: 65 Year
  Sex: Female
  Weight: 106.6 kg

DRUGS (12)
  1. LEXISCAN [Suspect]
     Indication: SCAN MYOCARDIAL PERFUSION
     Dosage: 0.4 MG, IV NOS
     Route: 042
     Dates: start: 20090226, end: 20090226
  2. CEPHALEXIN [Concomitant]
  3. MELOXICAM [Concomitant]
  4. VICODIN [Concomitant]
  5. HYDROCHLOROTHIAZIDE [Concomitant]
  6. GLYBURIDE [Concomitant]
  7. ASPIRIN [Concomitant]
  8. PRILOSEC [Concomitant]
  9. CRESTOR [Concomitant]
  10. TOPROL-XL [Concomitant]
  11. FOSAMAX [Concomitant]
  12. SYNTHROID [Concomitant]

REACTIONS (4)
  - DIZZINESS [None]
  - DYSPNOEA [None]
  - FLUSHING [None]
  - HYPERTENSION [None]
